FAERS Safety Report 9898907 (Version 1)
Quarter: 2014Q1

REPORT INFORMATION
  Report Type: Report from Study
  Country: US (occurrence: US)
  Receive Date: 20140214
  Receipt Date: 20140214
  Transmission Date: 20141002
  Serious: Yes (Death)
  Sender: FDA-Public Use
  Company Number: US-ACTELION-A-US2014-94742

PATIENT
  Age: 72 Year
  Sex: Female

DRUGS (3)
  1. VELETRI [Suspect]
     Indication: PULMONARY ARTERIAL HYPERTENSION
     Dosage: 57 UNK, UNK
     Route: 042
     Dates: start: 20120921
  2. COUMADIN [Concomitant]
  3. ADCIRCA [Concomitant]

REACTIONS (2)
  - Pulmonary arterial hypertension [Fatal]
  - Cardiac disorder [Fatal]
